FAERS Safety Report 5571512-2 (Version None)
Quarter: 2007Q4

REPORT INFORMATION
  Report Type: 
  Country: None (occurrence: None)
  Receive Date: 20071221
  Receipt Date: 20071217
  Transmission Date: 20080405
  Serious: Yes (Other)
  Sender: FDA-Public Use
  Company Number: DE-ELI_LILLY_AND_COMPANY-DE200710002839

PATIENT
  Age: 55 Year
  Sex: Male

DRUGS (4)
  1. OLANZAPINE [Suspect]
     Indication: DEPRESSION
     Dosage: 15 MG, EACH EVENING
     Route: 048
     Dates: start: 20070824
  2. OLANZAPINE [Suspect]
     Dosage: 10 MG, EACH EVENING
     Route: 048
     Dates: start: 20070101
  3. OLANZAPINE [Suspect]
     Dosage: 5 MG, EACH EVENING
     Route: 048
     Dates: start: 20070101, end: 20070927
  4. MIRTAZAPINE [Concomitant]
     Dosage: 45 MG, EACH EVENING
     Route: 048
     Dates: start: 20070820

REACTIONS (5)
  - ALANINE AMINOTRANSFERASE INCREASED [None]
  - ASPARTATE AMINOTRANSFERASE INCREASED [None]
  - BLOOD CHOLESTEROL INCREASED [None]
  - BLOOD TRIGLYCERIDES INCREASED [None]
  - WHITE BLOOD CELL COUNT INCREASED [None]
